FAERS Safety Report 12995566 (Version 1)
Quarter: 2016Q4

REPORT INFORMATION
  Report Type: Spontaneous
  Country: CA (occurrence: CA)
  Receive Date: 20161202
  Receipt Date: 20161202
  Transmission Date: 20170207
  Serious: Yes (Disabling)
  Sender: FDA-Public Use
  Company Number: CA-GLAXOSMITHKLINE-CA2016GSK177741

PATIENT
  Age: 53 Year
  Sex: Male
  Weight: 95 kg

DRUGS (1)
  1. IMITREX DF [Suspect]
     Active Substance: SUMATRIPTAN SUCCINATE
     Indication: PROPHYLAXIS
     Dosage: 100 MG, UNK
     Route: 048

REACTIONS (1)
  - Medication overuse headache [Not Recovered/Not Resolved]
